FAERS Safety Report 5022939-9 (Version None)
Quarter: 2006Q2

REPORT INFORMATION
  Report Type: 
  Country: None (occurrence: None)
  Receive Date: 20060426
  Receipt Date: 20060313
  Transmission Date: 20061013
  Serious: Yes (Other)
  Sender: FDA-Public Use
  Company Number: 2006037916

PATIENT
  Age: 70 Year
  Sex: Female
  Weight: 117.9352 kg

DRUGS (5)
  1. LYRICA [Suspect]
     Indication: NEUROPATHY
     Dosage: 150 MG (75 MG, 2 IN 1 D)
     Dates: start: 20060201
  2. ANTIHYPERTENSICES (ANTIHYPERTENSIVES) [Concomitant]
  3. ELAVIL [Concomitant]
  4. PAXIL [Concomitant]
  5. SOMA [Concomitant]

REACTIONS (2)
  - HEADACHE [None]
  - MUSCULOSKELETAL DISCOMFORT [None]
